FAERS Safety Report 20625244 (Version 3)
Quarter: 2022Q2

REPORT INFORMATION
  Report Type: Report from Study
  Country: US (occurrence: US)
  Receive Date: 20220323
  Receipt Date: 20220510
  Transmission Date: 20220721
  Serious: No
  Sender: FDA-Public Use
  Company Number: US-NOVARTISTESTPH-NVSC2022US065698

PATIENT
  Sex: Female

DRUGS (1)
  1. ENTRESTO [Suspect]
     Active Substance: SACUBITRIL\VALSARTAN
     Indication: Product used for unknown indication
     Dosage: 50 MG, BID
     Route: 048
     Dates: start: 20211223

REACTIONS (7)
  - Weight increased [Unknown]
  - Anxiety [Unknown]
  - Pleural effusion [Unknown]
  - Memory impairment [Unknown]
  - Weight decreased [Unknown]
  - Sleep disorder [Unknown]
  - Asthenia [Unknown]
